FAERS Safety Report 9597063 (Version 3)
Quarter: 2013Q4

REPORT INFORMATION
  Report Type: Spontaneous
  Country: US (occurrence: US)
  Receive Date: 20131004
  Receipt Date: 20131219
  Transmission Date: 20140711
  Serious: Yes (Other)
  Sender: FDA-Public Use
  Company Number: US-009507513-1310USA002417

PATIENT
  Age: 66 Year
  Sex: Male

DRUGS (7)
  1. INDINAVIR SULFATE [Suspect]
     Indication: HIV INFECTION
     Dosage: UNK
     Route: 048
  2. RITONAVIR [Interacting]
     Indication: HIV INFECTION
     Dosage: UNK
  3. LAMIVUDINE [Interacting]
     Indication: HIV INFECTION
     Dosage: UNK
  4. ZIDOVUDINE [Interacting]
     Indication: HIV INFECTION
  5. FLUTICASONE PROPIONATE [Interacting]
     Dosage: UNK
     Route: 055
  6. SALMETEROL [Concomitant]
  7. PREDNISOLONE [Concomitant]
     Dosage: 5 COURSES OVER 12 MONTHS
     Route: 048

REACTIONS (8)
  - Peroneal nerve palsy [Unknown]
  - Disturbance in attention [Unknown]
  - Amnesia [Unknown]
  - Increased tendency to bruise [Unknown]
  - Central obesity [Unknown]
  - Oesophageal candidiasis [Unknown]
  - Fatigue [Unknown]
  - Drug interaction [Unknown]
